FAERS Safety Report 7263611-4 (Version None)
Quarter: 2011Q1

REPORT INFORMATION
  Report Type: 
  Country: None (occurrence: None)
  Receive Date: 20110130
  Receipt Date: 20101028
  Transmission Date: 20110831
  Serious: No
  Sender: FDA-Public Use
  Company Number: US-ABBOTT-10P-163-0682095-00

PATIENT
  Sex: Female
  Weight: 68.1 kg

DRUGS (16)
  1. CLINORIL [Concomitant]
     Indication: BEHCET'S SYNDROME
  2. PREDNISONE [Concomitant]
     Indication: BEHCET'S SYNDROME
  3. TRENTOL [Concomitant]
     Indication: BEHCET'S SYNDROME
  4. COLCHICINE [Concomitant]
     Indication: BEHCET'S SYNDROME
  5. MULTI-VITAMIN [Concomitant]
     Indication: VITAMIN SUPPLEMENTATION
  6. PLAQUENIL [Concomitant]
     Indication: BEHCET'S SYNDROME
  7. METOPROLOL [Concomitant]
     Indication: HYPERTENSION
  8. HUMIRA [Suspect]
     Indication: BEHCET'S SYNDROME
     Dates: start: 20100901
  9. VITAMIN B COMPLEX [Concomitant]
     Indication: VITAMIN SUPPLEMENTATION
  10. CALCIUM [Concomitant]
     Indication: MINERAL SUPPLEMENTATION
  11. NEURONTIN [Concomitant]
     Indication: BEHCET'S SYNDROME
  12. VITAMIN D [Concomitant]
     Indication: VITAMIN SUPPLEMENTATION
  13. IMURAN [Concomitant]
     Indication: BEHCET'S SYNDROME
  14. ASCORBIC ACID [Concomitant]
     Indication: VITAMIN SUPPLEMENTATION
  15. LASIX [Concomitant]
     Indication: BEHCET'S SYNDROME
  16. ASPIRIN [Concomitant]
     Indication: CARDIAC DISORDER

REACTIONS (2)
  - THERAPEUTIC RESPONSE DECREASED [None]
  - EYE PAIN [None]
